FAERS Safety Report 9447889 (Version 1)
Quarter: 2013Q3

REPORT INFORMATION
  Report Type: Spontaneous
  Country: US (occurrence: None)
  Receive Date: 20130807
  Receipt Date: 20130807
  Transmission Date: 20140515
  Serious: Yes (Disabling)
  Sender: FDA-Public Use
  Company Number: None

PATIENT
  Age: 54 Year
  Sex: Female
  Weight: 78.02 kg

DRUGS (3)
  1. NEXIUM [Suspect]
     Indication: IRRITABLE BOWEL SYNDROME
  2. NEXIUM [Suspect]
     Indication: GASTROOESOPHAGEAL REFLUX DISEASE
  3. NEXIUM [Suspect]
     Indication: DYSPEPSIA

REACTIONS (12)
  - Vitamin D deficiency [None]
  - Serum ferritin decreased [None]
  - Incorrect drug administration duration [None]
  - Fatigue [None]
  - Insomnia [None]
  - Nervousness [None]
  - Depression [None]
  - Anxiety [None]
  - Abdominal pain [None]
  - Amnesia [None]
  - Disturbance in attention [None]
  - Headache [None]
